FAERS Safety Report 9435428 (Version 1)
Quarter: 2013Q3

REPORT INFORMATION
  Report Type: Spontaneous
  Country: CN (occurrence: CN)
  Receive Date: 20130801
  Receipt Date: 20130801
  Transmission Date: 20140515
  Serious: Yes (Other)
  Sender: FDA-Public Use
  Company Number: CN-GLAXOSMITHKLINE-B0911579A

PATIENT
  Age: 34 Year
  Sex: Female

DRUGS (1)
  1. SEROXAT [Suspect]
     Indication: ANXIETY
     Dosage: 20MG PER DAY
     Route: 048
     Dates: start: 20130710, end: 20130714

REACTIONS (6)
  - Suicidal ideation [Recovering/Resolving]
  - Hallucination [Unknown]
  - Dizziness [Unknown]
  - Headache [Unknown]
  - Eye pruritus [Unknown]
  - Ear discomfort [Unknown]
